FAERS Safety Report 8383789-9 (Version None)
Quarter: 2012Q2

REPORT INFORMATION
  Report Type: 
  Country: None (occurrence: None)
  Receive Date: 20120524
  Receipt Date: 20120511
  Transmission Date: 20120825
  Serious: Yes (Hospitalization)
  Sender: FDA-Public Use
  Company Number: FR-NAPPMUNDI-GBR-2011-0008354

PATIENT
  Sex: Male
  Weight: 81 kg

DRUGS (6)
  1. BISACODYL [Concomitant]
     Indication: LAXATIVE SUPPORTIVE CARE
     Dosage: 5 MG, PRN
     Route: 048
     Dates: start: 20110504, end: 20110601
  2. NOCTAMIDE [Concomitant]
     Dosage: UNK
     Dates: start: 20060201
  3. OXYCODONE HCL [Suspect]
     Indication: PAIN
     Dosage: 50 MG, DAILY
     Route: 048
     Dates: start: 20110504, end: 20110601
  4. OXYCODONE HYDROCHLORIDE [Concomitant]
     Indication: PAIN
     Dosage: 10 MG, PRN
     Route: 048
     Dates: start: 20110504, end: 20110601
  5. ESCITALOPRAM [Concomitant]
     Dosage: 10 MG, UNK
     Dates: start: 20060201
  6. BROMAZEPAM [Concomitant]
     Dosage: UNK
     Dates: start: 20060201

REACTIONS (3)
  - MYOCARDIAL INFARCTION [None]
  - MYOCARDIAL ISCHAEMIA [None]
  - ARTERIAL OCCLUSIVE DISEASE [None]
